FAERS Safety Report 8399152-0 (Version None)
Quarter: 2012Q2

REPORT INFORMATION
  Report Type: 
  Country: None (occurrence: None)
  Receive Date: 20120531
  Receipt Date: 20120522
  Transmission Date: 20120825
  Serious: Yes (Other)
  Sender: FDA-Public Use
  Company Number: JP-FRI-1000030111

PATIENT
  Sex: Male

DRUGS (5)
  1. RAMIAN [Concomitant]
     Dosage: 10 MG
     Dates: start: 20060101
  2. MEMANTINE HCL [Suspect]
     Indication: DEMENTIA ALZHEIMER'S TYPE
     Dosage: 5 MG
     Route: 048
     Dates: start: 20120108, end: 20120108
  3. ARICEPT [Concomitant]
     Indication: DEMENTIA ALZHEIMER'S TYPE
     Dosage: 10 MG
     Dates: start: 20101001
  4. TANATRIL [Concomitant]
     Dosage: 5 MG
     Dates: start: 20060101
  5. FAMOTIDINE [Concomitant]
     Dosage: 20 MG
     Dates: start: 20060101

REACTIONS (1)
  - SEDATION [None]
